FAERS Safety Report 25606104 (Version 1)
Quarter: 2025Q3

REPORT INFORMATION
  Report Type: Spontaneous
  Country: EU (occurrence: EU)
  Receive Date: 20250725
  Receipt Date: 20250725
  Transmission Date: 20251021
  Serious: Yes (Other)
  Sender: RANBAXY
  Company Number: EU-LRB-01050426

PATIENT
  Age: 27 Year
  Sex: Female
  Weight: 62 kg

DRUGS (2)
  1. SERTRALINE [Suspect]
     Active Substance: SERTRALINE HYDROCHLORIDE
     Indication: Affective disorder
     Dosage: 50 MILLIGRAM, DAILY
     Route: 048
     Dates: start: 20250314, end: 20250331
  2. SERTRALINE [Suspect]
     Active Substance: SERTRALINE HYDROCHLORIDE
     Indication: Anxiety

REACTIONS (2)
  - Maternal exposure during pregnancy [Unknown]
  - Foetal hypokinesia [Recovered/Resolved]
